FAERS Safety Report 8953604 (Version 2)
Quarter: 2013Q1

REPORT INFORMATION
  Report Type: Spontaneous
  Country: US (occurrence: US)
  Receive Date: 20121206
  Receipt Date: 20130117
  Transmission Date: 20140127
  Serious: Yes (Hospitalization, Other)
  Sender: FDA-Public Use
  Company Number: US-PFIZER INC-2012302175

PATIENT
  Age: 49 Year
  Sex: Female
  Weight: 63.5 kg

DRUGS (3)
  1. PROVERA [Suspect]
     Indication: VAGINAL HAEMORRHAGE
     Dosage: UNK
     Dates: start: 20121121, end: 20121121
  2. PROGESTERONE [Suspect]
     Indication: VAGINAL HAEMORRHAGE
     Dosage: UNK
     Dates: start: 20101031, end: 20110330
  3. ARMOUR THYROID [Concomitant]
     Indication: THYROID DISORDER
     Dosage: 30 MG, DAILY

REACTIONS (2)
  - Drug ineffective [Unknown]
  - Blood count abnormal [Unknown]
